FAERS Safety Report 6609780-8 (Version None)
Quarter: 2010Q1

REPORT INFORMATION
  Report Type: 
  Country: None (occurrence: None)
  Receive Date: 20100302
  Receipt Date: 20100216
  Transmission Date: 20100710
  Serious: Yes (Hospitalization, Other)
  Sender: FDA-Public Use
  Company Number: PHHY2010GB00826

PATIENT
  Sex: Male

DRUGS (4)
  1. CLOZARIL [Suspect]
     Indication: SCHIZOPHRENIA
     Dosage: UNK
     Dates: start: 20070910
  2. PROCYCLIDINE HYDROCHLORIDE 2MG TAB [Suspect]
     Dosage: 10 MG, BID
     Route: 048
  3. KWELLS [Suspect]
     Indication: SALIVARY HYPERSECRETION
     Dosage: 650 MG, UNK
     Route: 048
  4. WARFARIN SODIUM [Concomitant]

REACTIONS (5)
  - ANTIPSYCHOTIC DRUG LEVEL INCREASED [None]
  - CARDIAC ANEURYSM [None]
  - CARDIAC DISORDER [None]
  - COUGH [None]
  - MYOCARDIAL INFARCTION [None]
